FAERS Safety Report 22525192 (Version 1)
Quarter: 2023Q2

REPORT INFORMATION
  Report Type: Spontaneous
  Country: US (occurrence: US)
  Receive Date: 20230606
  Receipt Date: 20230606
  Transmission Date: 20230721
  Serious: No
  Sender: FDA-Public Use
  Company Number: US-SA-SAC20230602000751

PATIENT
  Age: 60 Year
  Sex: Male
  Weight: 99.33 kg

DRUGS (18)
  1. DUPIXENT [Suspect]
     Active Substance: DUPILUMAB
     Indication: Dermatitis atopic
     Dosage: 600 MG, 1X
     Route: 058
  2. SPIRIVA [Concomitant]
     Active Substance: TIOTROPIUM BROMIDE MONOHYDRATE
  3. SILODOSIN [Concomitant]
     Active Substance: SILODOSIN
  4. LOSARTAN POTASSIUM [Concomitant]
     Active Substance: LOSARTAN POTASSIUM
  5. ROPINIROLE [Concomitant]
     Active Substance: ROPINIROLE
  6. CIALIS [Concomitant]
     Active Substance: TADALAFIL
  7. OMEPRAZOLE [Concomitant]
     Active Substance: OMEPRAZOLE
  8. SPIRONOLACTONE [Concomitant]
     Active Substance: SPIRONOLACTONE
  9. LASIX [Concomitant]
     Active Substance: FUROSEMIDE
  10. SINGULAIR [Concomitant]
     Active Substance: MONTELUKAST SODIUM
  11. PHENOBARBITAL [Concomitant]
     Active Substance: PHENOBARBITAL
  12. SYMBICORT [Concomitant]
     Active Substance: BUDESONIDE\FORMOTEROL FUMARATE DIHYDRATE
  13. ATORVASTATIN CALCIUM [Concomitant]
     Active Substance: ATORVASTATIN CALCIUM
  14. GLIMEPIRIDE [Concomitant]
     Active Substance: GLIMEPIRIDE
  15. FARXIGA [Concomitant]
     Active Substance: DAPAGLIFLOZIN PROPANEDIOL
  16. LANTUS SOLOSTAR [Concomitant]
     Active Substance: INSULIN GLARGINE
  17. LYRICA [Concomitant]
     Active Substance: PREGABALIN
  18. METFORMIN HYDROCHLORIDE [Concomitant]
     Active Substance: METFORMIN HYDROCHLORIDE

REACTIONS (3)
  - Dry skin [Unknown]
  - Pruritus [Unknown]
  - Rash [Unknown]

NARRATIVE: CASE EVENT DATE: 20230515
